FAERS Safety Report 21347959 (Version 1)
Quarter: 2022Q3

REPORT INFORMATION
  Report Type: Report from Study
  Country: RO (occurrence: RO)
  Receive Date: 20220919
  Receipt Date: 20220919
  Transmission Date: 20221027
  Serious: Yes (Hospitalization, Other)
  Sender: FDA-Public Use
  Company Number: RO-CELLTRION INC.-2020RO023346

PATIENT

DRUGS (8)
  1. TRASTUZUMAB [Suspect]
     Active Substance: TRASTUZUMAB
     Indication: HER2 positive breast cancer
     Dosage: 600 MG EVERY 3 WEEKS/ MOST RECENT DOSE PRIOR TO THE EVENT: 18/SEP/2018
     Route: 042
     Dates: start: 20180818, end: 20190801
  2. CYCLOPHOSPHAMIDE [Suspect]
     Active Substance: CYCLOPHOSPHAMIDE
     Indication: HER2 positive breast cancer
     Dosage: 1000 MG, EVERY 3 WEEKS/ MOST RECENT DOSE PRIOR TO AE 28/AUG/2018
     Route: 042
     Dates: start: 20180626
  3. FLUOROURACIL [Suspect]
     Active Substance: FLUOROURACIL
     Indication: HER2 positive breast cancer
     Dosage: 1000 MG, EVERY 3 WEEKS/ MOST RECENT DOSE PRIOR TO AE 28/AUG/2018
     Route: 042
     Dates: start: 20180626
  4. DOCETAXEL [Suspect]
     Active Substance: DOCETAXEL
     Indication: HER2 positive breast cancer
     Dosage: 180 MG, EVERY 3 WEEKS/ MOST RECENT DOSE PRIOR TO AE 20/NOV/2018
     Route: 042
     Dates: start: 20180918
  5. EPIRUBICIN [Suspect]
     Active Substance: EPIRUBICIN
     Indication: HER2 positive breast cancer
     Dosage: 180 MG, EVERY 3 WEEKS/ MOST RECENT DOSE PRIOR TO AE 28/AUG/2018
     Route: 042
     Dates: start: 20180626
  6. INDAPAMIDE\PERINDOPRIL [Concomitant]
     Active Substance: INDAPAMIDE\PERINDOPRIL
     Dosage: ONGOING = CHECKED
  7. CARVEDILOL [Concomitant]
     Active Substance: CARVEDILOL
     Dosage: ONGOING = CHECKED
  8. EUTHYROX [Concomitant]
     Active Substance: LEVOTHYROXINE SODIUM
     Dosage: ONGOING = CHECKED

REACTIONS (2)
  - Angina pectoris [Recovered/Resolved]
  - Off label use [Unknown]

NARRATIVE: CASE EVENT DATE: 20190713
